FAERS Safety Report 16868949 (Version 1)
Quarter: 2019Q3

REPORT INFORMATION
  Report Type: Report from Study
  Country: ES (occurrence: ES)
  Receive Date: 20190930
  Receipt Date: 20190930
  Transmission Date: 20191005
  Serious: Yes (Other)
  Sender: FDA-Public Use
  Company Number: ES-PFIZER INC-2019415990

PATIENT
  Age: 29 Year
  Sex: Female

DRUGS (6)
  1. DEXKETOPROFENO [DEXKETOPROFEN] [Suspect]
     Active Substance: DEXKETOPROFEN
     Indication: ANALGESIC THERAPY
     Dosage: 50 MG, 3X/DAY (50 MG EVERY 8 HOUR)
     Route: 042
     Dates: start: 20180928, end: 20181002
  2. DEXKETOPROFENO [DEXKETOPROFEN] [Suspect]
     Active Substance: DEXKETOPROFEN
     Dosage: 25 MG, 2X/DAY (EVERY 12 HOUR)
     Route: 048
     Dates: start: 20181002, end: 20181015
  3. PROPOFOL. [Suspect]
     Active Substance: PROPOFOL
     Indication: SEDATION
     Dosage: CONTINUOUS INFUSION
     Route: 041
     Dates: start: 20180923, end: 20180925
  4. LEVOFLOXACINO [LEVOFLOXACIN] [Suspect]
     Active Substance: LEVOFLOXACIN
     Indication: RESPIRATORY TRACT INFECTION
     Dosage: 500 MG, DAILY (500MG EVERY 24 HOUR)
     Route: 042
     Dates: start: 20180923, end: 20180927
  5. LINEZOLID. [Suspect]
     Active Substance: LINEZOLID
     Indication: RESPIRATORY TRACT INFECTION
     Dosage: 600 MG, 2X/DAY(600MG EVERY 12 HOUR)
     Route: 042
     Dates: start: 20180923, end: 20180926
  6. FUROSEMIDA [FUROSEMIDE] [Suspect]
     Active Substance: FUROSEMIDE
     Indication: POLYURIA
     Dosage: 20 MG, 2X/DAY (20MG EVERY 12 HOUR)
     Route: 042
     Dates: start: 20180925, end: 20180927

REACTIONS (1)
  - Hyperamylasaemia [Recovered/Resolved]

NARRATIVE: CASE EVENT DATE: 20181001
